FAERS Safety Report 10626737 (Version 1)
Quarter: 2014Q4

REPORT INFORMATION
  Report Type: Report from Study
  Country: US (occurrence: US)
  Receive Date: 20141204
  Receipt Date: 20141204
  Transmission Date: 20150529
  Serious: Yes (Death)
  Sender: FDA-Public Use
  Company Number: US-ABBVIE-14K-163-1314362-00

PATIENT
  Age: 50 Year
  Sex: Female
  Weight: 62.65 kg

DRUGS (1)
  1. HUMIRA [Suspect]
     Active Substance: ADALIMUMAB
     Indication: RHEUMATOID ARTHRITIS
     Route: 058
     Dates: end: 201109

REACTIONS (3)
  - Back pain [Unknown]
  - Breast cancer metastatic [Fatal]
  - Pain [Unknown]

NARRATIVE: CASE EVENT DATE: 201109
